FAERS Safety Report 5863537-4 (Version None)
Quarter: 2008Q3

REPORT INFORMATION
  Report Type: 
  Country: None (occurrence: None)
  Receive Date: 20080828
  Receipt Date: 20080814
  Transmission Date: 20090109
  Serious: Yes (Life-Threatening, Hospitalization)
  Sender: FDA-Public Use
  Company Number: GB-ELI_LILLY_AND_COMPANY-GB200805001151

PATIENT
  Sex: Female
  Weight: 83 kg

DRUGS (7)
  1. BYETTA [Suspect]
     Indication: TYPE 2 DIABETES MELLITUS
     Dosage: 5 UG, UNKNOWN
     Route: 058
     Dates: start: 20071001, end: 20080101
  2. BYETTA [Suspect]
     Dosage: 10 UG, UNKNOWN
     Route: 058
     Dates: end: 20080401
  3. LANTUS [Concomitant]
     Dosage: UNK, UNKNOWN
     Route: 065
  4. INSULIN ASPART [Concomitant]
     Dosage: UNK, UNKNOWN
     Route: 065
  5. METFORMIN HCL [Concomitant]
     Dosage: 2.5 G, UNKNOWN
     Route: 048
  6. TOLTERODINE TARTRATE [Concomitant]
     Dosage: 4 MG, UNKNOWN
     Route: 048
  7. SIMVASTATIN [Concomitant]
     Dosage: 20 MG, 2/D
     Route: 048

REACTIONS (2)
  - DIABETIC KETOACIDOSIS [None]
  - WEIGHT DECREASED [None]
